FAERS Safety Report 8269380-3 (Version None)
Quarter: 2012Q2

REPORT INFORMATION
  Report Type: 
  Country: None (occurrence: None)
  Receive Date: 20120409
  Receipt Date: 20120326
  Transmission Date: 20120825
  Serious: Yes (Other)
  Sender: FDA-Public Use
  Company Number: CHPA2012US005903

PATIENT
  Age: 60 Year
  Sex: Male

DRUGS (5)
  1. VICODIN [Concomitant]
     Indication: MIGRAINE
     Route: 048
  2. CODEINE [Concomitant]
     Indication: MIGRAINE
  3. EXCEDRIN EXTRA STRENGTH TABLETS [Suspect]
     Indication: MIGRAINE
     Dosage: 1 OR 2 CAPLETS, EVERY MORNING
     Route: 048
  4. IBUPROFEN [Concomitant]
     Indication: MIGRAINE
     Dosage: 800 MG, UNK
  5. TYLENOL (CAPLET) [Concomitant]
     Indication: MIGRAINE

REACTIONS (5)
  - UNDERDOSE [None]
  - DRUG DEPENDENCE [None]
  - MIGRAINE [None]
  - INCORRECT DRUG ADMINISTRATION DURATION [None]
  - REBOUND EFFECT [None]
